FAERS Safety Report 19226884 (Version 1)
Quarter: 2021Q2

REPORT INFORMATION
  Report Type: Spontaneous
  Country: US (occurrence: US)
  Receive Date: 20210506
  Receipt Date: 20210506
  Transmission Date: 20210717
  Serious: Yes (Other)
  Sender: FDA-Public Use
  Company Number: US-PFIZER INC-2021473592

PATIENT
  Age: 76 Year
  Sex: Male
  Weight: 94 kg

DRUGS (22)
  1. XALKORI [Concomitant]
     Active Substance: CRIZOTINIB
     Indication: UVEAL MELANOMA
     Dosage: 200 MG, 2X/DAY
     Route: 065
  2. TYLENOL [Concomitant]
     Active Substance: ACETAMINOPHEN
     Dosage: UNK
     Dates: start: 202102
  3. AMOXICILLIN. [Concomitant]
     Active Substance: AMOXICILLIN
     Dosage: UNK
     Dates: start: 202103, end: 20210325
  4. PROPANOLOL [PROPRANOLOL] [Concomitant]
     Active Substance: PROPRANOLOL HYDROCHLORIDE
     Dosage: UNK
     Dates: start: 201909
  5. LOMOTIL [LOPERAMIDE HYDROCHLORIDE] [Concomitant]
     Active Substance: LOPERAMIDE HYDROCHLORIDE
     Dosage: UNK
     Dates: start: 20210326
  6. XALKORI [Concomitant]
     Active Substance: CRIZOTINIB
     Dosage: 200 MG, 2X/DAY
     Route: 048
     Dates: start: 20210326
  7. OMEPRAZOLE. [Concomitant]
     Active Substance: OMEPRAZOLE
     Dosage: UNK
     Dates: start: 2020
  8. XALKORI [Concomitant]
     Active Substance: CRIZOTINIB
     Dosage: 200 MG, 2X/DAY
     Route: 048
     Dates: start: 20210409
  9. OXYBUTIN [Concomitant]
     Active Substance: OXYBUTYNIN
     Dosage: UNK
  10. DOXYCYCLINE. [Concomitant]
     Active Substance: DOXYCYCLINE
     Dosage: UNK
     Dates: start: 20210326
  11. PROPANOLOL HCL [Suspect]
     Active Substance: PROPRANOLOL HYDROCHLORIDE
     Dosage: UNK
     Dates: start: 201909
  12. LASIX [Suspect]
     Active Substance: FUROSEMIDE
     Dosage: UNK, DAILY (20 DAILY)
     Dates: start: 20210416
  13. PRAVACHOL [Concomitant]
     Active Substance: PRAVASTATIN SODIUM
     Dosage: UNK
     Dates: start: 2006
  14. MYRBETRIQ [Concomitant]
     Active Substance: MIRABEGRON
     Dosage: UNK
     Dates: start: 202003
  15. FLONASE [Concomitant]
     Active Substance: FLUTICASONE PROPIONATE
     Dosage: UNK
     Dates: start: 202103
  16. ONCOVITE [Concomitant]
     Dosage: UNK
  17. IDE 196 [Concomitant]
     Active Substance: DAROVASERTIB
     Dosage: 300 MG, 2X/DAY
     Route: 048
     Dates: start: 20210409
  18. ALEVE [Concomitant]
     Active Substance: NAPROXEN SODIUM
     Dosage: UNK
     Dates: start: 202102
  19. LASIX [Suspect]
     Active Substance: FUROSEMIDE
     Dosage: UNK, DAILY (40)
  20. IDE 196 [Concomitant]
     Active Substance: DAROVASERTIB
     Indication: UVEAL MELANOMA
     Dosage: 300 MG, 2X/DAY
     Route: 065
  21. IDE 196 [Concomitant]
     Active Substance: DAROVASERTIB
     Dosage: 300 MG, 2X/DAY
     Route: 048
     Dates: start: 20210326
  22. E?MYCIN [Concomitant]
     Active Substance: ERYTHROMYCIN
     Dosage: UNK
     Dates: start: 20210326

REACTIONS (3)
  - Bradycardia [Unknown]
  - Dizziness [Unknown]
  - Hypotension [Unknown]

NARRATIVE: CASE EVENT DATE: 20210419
